FAERS Safety Report 7449498-5 (Version None)
Quarter: 2011Q2

REPORT INFORMATION
  Report Type: 
  Country: None (occurrence: None)
  Receive Date: 20110502
  Receipt Date: 20110420
  Transmission Date: 20111010
  Serious: Yes (Hospitalization)
  Sender: FDA-Public Use
  Company Number: CH-BAYER-2011-034086

PATIENT
  Age: 48 Year
  Sex: Male
  Weight: 90 kg

DRUGS (6)
  1. PLAVIX [Suspect]
     Dosage: 75 MG, QD
     Route: 048
     Dates: start: 20090401, end: 20100414
  2. REMERON [Concomitant]
     Dosage: 30 MG, QD
     Route: 048
  3. ASPIRIN [Suspect]
     Dosage: 100 MG, QD
     Route: 048
     Dates: start: 20090401
  4. BELOC ZOK [Concomitant]
     Dosage: 37.5 MG, QD
     Route: 048
  5. SORTIS [Concomitant]
     Dosage: 80 MG, QD
     Route: 048
  6. ZESTRIL [Concomitant]
     Dosage: 20 MG, QD
     Route: 048

REACTIONS (5)
  - GASTRIC ULCER [None]
  - WEIGHT DECREASED [None]
  - HAEMATEMESIS [None]
  - ABDOMINAL PAIN UPPER [None]
  - MELAENA [None]
